APPROVED DRUG PRODUCT: CHLORTHALIDONE
Active Ingredient: CHLORTHALIDONE
Strength: 50MG
Dosage Form/Route: TABLET;ORAL
Application: A088651 | Product #001
Applicant: COSETTE PHARMACEUTICALS INC
Approved: May 30, 1985 | RLD: No | RS: No | Type: DISCN